FAERS Safety Report 4947850-0 (Version None)
Quarter: 2006Q1

REPORT INFORMATION
  Report Type: 
  Country: None (occurrence: None)
  Receive Date: 20060317
  Receipt Date: 20060317
  Transmission Date: 20060701
  Serious: Yes (Hospitalization)
  Sender: FDA-Public Use
  Company Number: None

PATIENT
  Sex: Male
  Weight: 63 kg

DRUGS (3)
  1. LISINOPRIL [Suspect]
     Indication: HYPERTENSION
     Dosage: 5MG  DAILY   PO
     Route: 048
     Dates: start: 20060125, end: 20060212
  2. CELEBREX [Suspect]
     Indication: GOUT
     Dosage: 100MG  TWICE DAILY  PO
     Route: 048
     Dates: start: 20051206, end: 20060212
  3. CELEBREX [Suspect]
     Indication: OSTEOARTHRITIS
     Dosage: 100MG  TWICE DAILY  PO
     Route: 048
     Dates: start: 20051206, end: 20060212

REACTIONS (4)
  - DYSPEPSIA [None]
  - OEDEMA PERIPHERAL [None]
  - RENAL FAILURE ACUTE [None]
  - VOMITING [None]
